FAERS Safety Report 6121404-5 (Version None)
Quarter: 2009Q1

REPORT INFORMATION
  Report Type: 
  Country: None (occurrence: None)
  Receive Date: 20090313
  Receipt Date: 20090313
  Transmission Date: 20090719
  Serious: No
  Sender: FDA-Public Use
  Company Number: None

PATIENT
  Age: 28 Year
  Sex: Male
  Weight: 58.3 kg

DRUGS (10)
  1. SUTENT [Suspect]
     Indication: HEPATIC NEOPLASM MALIGNANT
     Dosage: 37.5 QD PO
     Route: 048
     Dates: start: 20090303, end: 20090311
  2. XELODA [Suspect]
     Indication: HEPATIC NEOPLASM MALIGNANT
     Dosage: 2000 MG QAM, 1500MG QPM BID PO
     Route: 048
     Dates: start: 20090303, end: 20090311
  3. ADVIL [Concomitant]
  4. ZOFRAN [Concomitant]
  5. PROCHLORPERAZINE [Concomitant]
  6. REGLAN [Concomitant]
  7. LORAZEPAM [Concomitant]
  8. LOPERAMIDE HCL [Concomitant]
  9. BENADRYL [Concomitant]
  10. COMPAZINE [Concomitant]

REACTIONS (7)
  - COGNITIVE DISORDER [None]
  - DEMYELINATION [None]
  - FEELING ABNORMAL [None]
  - HEADACHE [None]
  - MUSCLE RIGIDITY [None]
  - NAUSEA [None]
  - VOMITING [None]
